FAERS Safety Report 15195781 (Version 1)
Quarter: 2018Q3

REPORT INFORMATION
  Report Type: Spontaneous
  Country: US (occurrence: US)
  Receive Date: 20180725
  Receipt Date: 20180725
  Transmission Date: 20181010
  Serious: No
  Sender: FDA-Public Use
  Company Number: US-PFIZER INC-2017369538

PATIENT
  Age: 12 Year
  Sex: Male
  Weight: 36 kg

DRUGS (2)
  1. GENOTROPIN [Suspect]
     Active Substance: SOMATROPIN
     Indication: BODY HEIGHT BELOW NORMAL
     Dosage: 2 MG, 1X/DAY
     Dates: start: 201708
  2. GENOTROPIN [Suspect]
     Active Substance: SOMATROPIN
     Indication: DELAYED PUBERTY
     Dosage: 3 MG, DAILY
     Dates: start: 20170910

REACTIONS (4)
  - Incorrect dose administered [Unknown]
  - Blood albumin increased [Unknown]
  - Mean platelet volume increased [Unknown]
  - Eosinophil count increased [Unknown]
